FAERS Safety Report 9569472 (Version 1)
Quarter: 2013Q3

REPORT INFORMATION
  Report Type: Spontaneous
  Country: US (occurrence: US)
  Receive Date: 20130930
  Receipt Date: 20130930
  Transmission Date: 20140515
  Serious: No
  Sender: FDA-Public Use
  Company Number: US-AMGEN-USASP2013066598

PATIENT
  Age: 52 Year
  Sex: Female
  Weight: 72.56 kg

DRUGS (7)
  1. ENBREL [Suspect]
     Indication: PSORIATIC ARTHROPATHY
     Dosage: UNK
     Route: 058
     Dates: start: 20120515, end: 20120815
  2. CITALOPRAM [Concomitant]
     Dosage: UNK
  3. ESTRADIOL [Concomitant]
     Dosage: UNK
  4. HUMIRA [Concomitant]
     Dosage: UNK
  5. JANUVIA [Concomitant]
     Dosage: UNK
  6. PLAQUENIL                          /00072602/ [Concomitant]
     Dosage: UNK
  7. WELLBUTRIN [Concomitant]
     Dosage: UNK

REACTIONS (1)
  - Drug ineffective [Not Recovered/Not Resolved]
